FAERS Safety Report 5960788-5 (Version None)
Quarter: 2008Q4

REPORT INFORMATION
  Report Type: 
  Country: None (occurrence: None)
  Receive Date: 20081120
  Receipt Date: 20081110
  Transmission Date: 20090506
  Serious: Yes (Death, Other)
  Sender: FDA-Public Use
  Company Number: GB-PFIZER INC-2008096743

PATIENT
  Age: 7 Year

DRUGS (4)
  1. ATGAM [Suspect]
     Indication: CORD BLOOD TRANSPLANT THERAPY
  2. CYCLOPHOSPHAMIDE [Suspect]
     Indication: CORD BLOOD TRANSPLANT THERAPY
     Route: 042
  3. CYCLOSPORINE [Suspect]
     Indication: CORD BLOOD TRANSPLANT THERAPY
  4. TREOSULFAN [Suspect]
     Indication: CORD BLOOD TRANSPLANT THERAPY
     Route: 042

REACTIONS (3)
  - CYTOMEGALOVIRUS INFECTION [None]
  - DISEASE PROGRESSION [None]
  - EPSTEIN-BARR VIRUS INFECTION [None]
